FAERS Safety Report 7691110-4 (Version None)
Quarter: 2011Q3

REPORT INFORMATION
  Report Type: 
  Country: None (occurrence: None)
  Receive Date: 20110818
  Receipt Date: 20060419
  Transmission Date: 20111222
  Serious: Yes (Death, Other)
  Sender: FDA-Public Use
  Company Number: US-BAXTER-2011BH026451

PATIENT

DRUGS (12)
  1. METHOTREXATE [Suspect]
     Indication: BONE MARROW CONDITIONING REGIMEN
     Route: 042
  2. METHYLPREDNISOLONE [Suspect]
     Indication: BONE MARROW CONDITIONING REGIMEN
     Route: 042
  3. NEUPOGEN [Concomitant]
     Indication: PRODUCT USED FOR UNKNOWN INDICATION
     Route: 058
  4. CYCLOPHOSPHAMIDE [Suspect]
     Indication: BONE MARROW CONDITIONING REGIMEN
     Route: 065
  5. CYCLOPHOSPHAMIDE [Suspect]
     Indication: CHRONIC MYELOID LEUKAEMIA
     Route: 065
  6. METHOTREXATE [Suspect]
     Route: 042
  7. METHOTREXATE [Suspect]
     Route: 042
  8. METHOTREXATE [Suspect]
     Indication: CHRONIC MYELOID LEUKAEMIA
     Route: 042
  9. METHYLPREDNISOLONE [Suspect]
     Indication: CHRONIC MYELOID LEUKAEMIA
     Route: 042
  10. CYCLOSPORINE [Suspect]
     Indication: BONE MARROW CONDITIONING REGIMEN
     Route: 042
  11. CYCLOSPORINE [Suspect]
     Indication: CHRONIC MYELOID LEUKAEMIA
     Route: 042
  12. MESNA [Concomitant]
     Indication: PROPHYLAXIS
     Route: 065

REACTIONS (5)
  - CARDIOTOXICITY [None]
  - VENTRICULAR FIBRILLATION [None]
  - CARDIAC ARREST [None]
  - VENOOCCLUSIVE DISEASE [None]
  - HEPATOTOXICITY [None]
